FAERS Safety Report 8431824-1 (Version None)
Quarter: 2012Q2

REPORT INFORMATION
  Report Type: 
  Country: None (occurrence: None)
  Receive Date: 20120613
  Receipt Date: 20120608
  Transmission Date: 20120825
  Serious: Yes (Other)
  Sender: FDA-Public Use
  Company Number: JP-PFIZER INC-2012127083

PATIENT
  Age: 74 Year
  Sex: Female
  Weight: 54 kg

DRUGS (4)
  1. DEXAMETHASONE SODIUM PHOSPHATE [Suspect]
     Indication: MULTIPLE MYELOMA
     Dosage: 20 MG, ADDED TO TREATMENT ON THE SAME DAY OR THE DAY AFTER BORTEZOMIB WAS ADMINISTERED
  2. BORTEZOMIB [Suspect]
     Indication: MULTIPLE MYELOMA
     Dosage: TWICE-WEEKLY AT 1.3 MG/M2 DURING THE 1ST CYCLE
  3. BORTEZOMIB [Suspect]
     Dosage: ONCE-WEEKLY AT 1.0 MG/M2 DURING THE 3RD CYCLE
  4. BORTEZOMIB [Suspect]
     Dosage: 1.0 MG/M2 FOR THE 2ND CYCLE

REACTIONS (2)
  - CONSTIPATION [None]
  - ILEUS PARALYTIC [None]
